FAERS Safety Report 17222406 (Version 1)
Quarter: 2020Q1

REPORT INFORMATION
  Report Type: Spontaneous
  Country: CN (occurrence: CN)
  Receive Date: 20200101
  Receipt Date: 20200101
  Transmission Date: 20200409
  Serious: Yes (Hospitalization)
  Sender: FDA-Public Use
  Company Number: CN-BAXTER-2019BAX026429

PATIENT
  Age: 27 Year
  Sex: Female
  Weight: 38 kg

DRUGS (4)
  1. 0.9% SODIUM CHLORIDE INJECTION [Suspect]
     Active Substance: SODIUM CHLORIDE
     Dosage: DOSE RE-INTRODUCED, CYCLOPHOSPHAMIDE + SODIUM CHLORIDE (NS)
     Route: 041
  2. ENDOXAN [Suspect]
     Active Substance: CYCLOPHOSPHAMIDE
     Indication: BENIGN HYDATIDIFORM MOLE
     Dosage: CYCLOPHOSPHAMIDE FOR INJECTION (IMPORTED) + SODIUM CHLORIDE (NS) 500ML
     Route: 041
     Dates: start: 20191120, end: 20191120
  3. ENDOXAN [Suspect]
     Active Substance: CYCLOPHOSPHAMIDE
     Dosage: DOSE RE-INTRODUCED, CYCLOPHOSPHAMIDE + SODIUM CHLORIDE (NS)
     Route: 041
  4. 0.9% SODIUM CHLORIDE INJECTION [Suspect]
     Active Substance: SODIUM CHLORIDE
     Indication: MEDICATION DILUTION
     Dosage: CYCLOPHOSPHAMIDE FOR INJECTION (IMPORTED) 0.8 G + SODIUM CHLORIDE (NS)
     Route: 041
     Dates: start: 20191120, end: 20191120

REACTIONS (1)
  - Bone marrow failure [Unknown]

NARRATIVE: CASE EVENT DATE: 20191121
